FAERS Safety Report 8923484 (Version 2)
Quarter: 2012Q4

REPORT INFORMATION
  Report Type: 
  Country: GB (occurrence: GB)
  Receive Date: 20121123
  Receipt Date: 20121130
  Transmission Date: 20130627
  Serious: Yes (Death)
  Sender: FDA-Public Use
  Company Number: GB-ABBOTT-12P-167-1006452-00

PATIENT
  Sex: Male

DRUGS (1)
  1. SYNAGIS [Suspect]
     Indication: PRODUCT USED FOR UNKNOWN INDICATION
     Dates: start: 20121031, end: 20121031

REACTIONS (1)
  - Death [Fatal]
